FAERS Safety Report 7398688-9 (Version None)
Quarter: 2011Q2

REPORT INFORMATION
  Report Type: 
  Country: None (occurrence: None)
  Receive Date: 20110407
  Receipt Date: 20110325
  Transmission Date: 20111010
  Serious: No
  Sender: FDA-Public Use
  Company Number: US-BIOGENIDEC-2011BI012431

PATIENT
  Sex: Female

DRUGS (3)
  1. CYTOXAN [Concomitant]
     Dates: end: 20080101
  2. TYSABRI [Suspect]
     Indication: MULTIPLE SCLEROSIS
     Route: 042
     Dates: start: 20080825, end: 20101201
  3. CYTOXAN [Concomitant]

REACTIONS (13)
  - VISUAL IMPAIRMENT [None]
  - TREMOR [None]
  - DRUG HYPERSENSITIVITY [None]
  - MEMORY IMPAIRMENT [None]
  - INFECTION [None]
  - BACK PAIN [None]
  - FATIGUE [None]
  - MALAISE [None]
  - PAIN IN EXTREMITY [None]
  - ASTHENIA [None]
  - COUGH [None]
  - HYPOAESTHESIA [None]
  - CONFUSIONAL STATE [None]
